FAERS Safety Report 7271185-7 (Version None)
Quarter: 2011Q1

REPORT INFORMATION
  Report Type: 
  Country: None (occurrence: None)
  Receive Date: 20110202
  Receipt Date: 20110130
  Transmission Date: 20110831
  Serious: No
  Sender: FDA-Public Use
  Company Number: US-PFIZER INC-2011021169

PATIENT
  Sex: Female
  Weight: 17 kg

DRUGS (3)
  1. TYLENOL-500 [Concomitant]
     Dosage: UNK
  2. AUGMENTIN '125' [Concomitant]
     Dosage: UNK
  3. CHILDREN'S ADVIL [Suspect]
     Dosage: UNK, 2X/DAY
     Route: 048
     Dates: start: 20110127, end: 20110129

REACTIONS (1)
  - FAECES DISCOLOURED [None]
